FAERS Safety Report 6665654-8 (Version None)
Quarter: 2010Q2

REPORT INFORMATION
  Report Type: 
  Country: None (occurrence: None)
  Receive Date: 20100402
  Receipt Date: 20100322
  Transmission Date: 20101027
  Serious: Yes (Hospitalization, Other)
  Sender: FDA-Public Use
  Company Number: US-RB-019570-09

PATIENT
  Sex: Female

DRUGS (3)
  1. SUBUTEX [Suspect]
     Route: 060
     Dates: start: 20090817, end: 20091201
  2. SUBOXONE [Suspect]
     Route: 060
     Dates: start: 20090421, end: 20090816
  3. SUBOXONE [Suspect]
     Dosage: UNKNOWN DOSING DETAILS
     Route: 060
     Dates: start: 20091201

REACTIONS (3)
  - ABORTION SPONTANEOUS [None]
  - DRUG EXPOSURE DURING PREGNANCY [None]
  - ROAD TRAFFIC ACCIDENT [None]
